FAERS Safety Report 23069745 (Version 1)
Quarter: 2023Q4

REPORT INFORMATION
  Report Type: Spontaneous
  Country: IT (occurrence: IT)
  Receive Date: 20231016
  Receipt Date: 20231016
  Transmission Date: 20240110
  Serious: Yes (Hospitalization)
  Sender: FDA-Public Use
  Company Number: None

PATIENT
  Age: 75 Year
  Sex: Male

DRUGS (11)
  1. AMLODIPINE\OLMESARTAN [Suspect]
     Active Substance: AMLODIPINE\OLMESARTAN
     Indication: Hypertension
     Dosage: START OF THERAPY OFFICIALLY ASSIGNED DOSE: 40/10 MG 1CP
     Route: 065
  2. NEBIVOLOL [Suspect]
     Active Substance: NEBIVOLOL
     Indication: Hypertension
     Dosage: START OF THERAPY OFFICIALLY ASSIGNED DOSE: 5 MG 1CP
  3. FENOFIBRATE [Concomitant]
     Active Substance: FENOFIBRATE
     Indication: Product used for unknown indication
     Dosage: START OF THERAPY OFFICIALLY ASSIGNED
  4. PANTOPRAZOLE [Concomitant]
     Active Substance: PANTOPRAZOLE
     Indication: Product used for unknown indication
     Dosage: START OF THERAPY OFFICIALLY ASSIGNED DOSE: 40 MG 1CP
  5. JANUVIA [Concomitant]
     Active Substance: SITAGLIPTIN PHOSPHATE
     Indication: Product used for unknown indication
     Dosage: START OF THERAPY OFFICIALLY ASSIGNED DOSE: 25 MF 1CP X2
  6. TRAZODONE [Concomitant]
     Active Substance: TRAZODONE HYDROCHLORIDE
     Indication: Product used for unknown indication
     Dosage: START OF THERAPY OFFICIALLY ASSIGNED DOSE: 50 MG 1/2 CP
  7. GABAPENTIN [Concomitant]
     Active Substance: GABAPENTIN
     Indication: Product used for unknown indication
     Dosage: START OF THERAPY OFFICIALLY ASSIGNED DOSE: 100 MG 1 TABLET X3
  8. ATORVASTATIN [Concomitant]
     Active Substance: ATORVASTATIN
     Indication: Product used for unknown indication
     Dosage: START OF THERAPY OFFICIALLY ASSIGNED DOSE: 20 MG 1CP
  9. LEVOTHYROXINE SODIUM [Concomitant]
     Active Substance: LEVOTHYROXINE SODIUM
     Indication: Product used for unknown indication
     Dosage: START OF THERAPY OFFICIALLY ASSIGNED
  10. ASPIRIN [Concomitant]
     Active Substance: ASPIRIN
     Indication: Product used for unknown indication
     Dosage: START OF THERAPY OFFICIALLY ASSIGNED
  11. TRIAZOLAM [Concomitant]
     Active Substance: TRIAZOLAM
     Indication: Product used for unknown indication
     Dosage: START OF THERAPY OFFICIALLY ASSIGNED DOSE: 250 MG 2 CPS

REACTIONS (2)
  - Blood pressure increased [Recovering/Resolving]
  - Drug ineffective [Recovering/Resolving]

NARRATIVE: CASE EVENT DATE: 20230225
